FAERS Safety Report 13845667 (Version 1)
Quarter: 2017Q3

REPORT INFORMATION
  Report Type: Spontaneous
  Country: FR (occurrence: FR)
  Receive Date: 20170808
  Receipt Date: 20170808
  Transmission Date: 20171127
  Serious: Yes (Other)
  Sender: FDA-Public Use
  Company Number: FR-SA-2017SA142202

PATIENT
  Age: 76 Year
  Sex: Male

DRUGS (5)
  1. BCG VACCINE [Suspect]
     Active Substance: BCG VACCINE
     Indication: TRANSITIONAL CELL CARCINOMA
     Route: 042
     Dates: start: 20170720, end: 20170721
  2. JANUMET [Suspect]
     Active Substance: METFORMIN HYDROCHLORIDE\SITAGLIPTIN PHOSPHATE
     Route: 048
  3. OFLOCET [Suspect]
     Active Substance: OFLOXACIN
     Indication: PROPHYLAXIS
     Route: 048
     Dates: start: 20170720, end: 20170721
  4. LANTUS [Suspect]
     Active Substance: INSULIN GLARGINE
     Route: 058
  5. AMAREL [Suspect]
     Active Substance: GLIMEPIRIDE
     Route: 048

REACTIONS (5)
  - Fall [Recovered/Resolved]
  - Tremor [Recovered/Resolved]
  - Vertigo [Recovered/Resolved]
  - Vomiting [Recovered/Resolved]
  - Malaise [Recovered/Resolved]

NARRATIVE: CASE EVENT DATE: 20170721
